FAERS Safety Report 8335038 (Version 15)
Quarter: 2015Q2

REPORT INFORMATION
  Report Type: Report from Study
  Country: GB (occurrence: GB)
  Receive Date: 20120112
  Receipt Date: 20150515
  Transmission Date: 20150821
  Serious: Yes (Death, Hospitalization)
  Sender: FDA-Public Use
  Company Number: GB-ROCHE-1029226

PATIENT
  Age: 60 Year
  Sex: Male
  Weight: 60 kg

DRUGS (10)
  1. GLICLAZIDE [Concomitant]
     Active Substance: GLICLAZIDE
     Indication: TYPE 2 DIABETES MELLITUS
     Route: 065
     Dates: start: 2009, end: 20120109
  2. GABAPENTIN. [Concomitant]
     Active Substance: GABAPENTIN
     Dosage: TOTAL DAILY DOSE:TBC
     Route: 065
  3. ATORVASTATIN [Concomitant]
     Active Substance: ATORVASTATIN
     Route: 065
     Dates: start: 2009, end: 20120109
  4. MUCAINE [Concomitant]
     Active Substance: ALUMINUM HYDROXIDE\MAGNESIUM HYDROXIDE\SIMETHICONE
     Route: 065
     Dates: start: 20110818, end: 20120109
  5. VEMURAFENIB [Suspect]
     Active Substance: VEMURAFENIB
     Indication: METASTATIC MALIGNANT MELANOMA
     Dosage: DATE OF LAST DOSE: 04/JAN/2012
     Route: 048
     Dates: start: 20111216, end: 20120105
  6. METOCLOPRAMIDE. [Concomitant]
     Active Substance: METOCLOPRAMIDE
     Route: 065
     Dates: start: 2010, end: 20120109
  7. OMEPRAZOLE. [Concomitant]
     Active Substance: OMEPRAZOLE
     Route: 065
     Dates: start: 2009, end: 20120109
  8. ORAMORPH SR SUSTAINED RELEASE [Concomitant]
     Active Substance: MORPHINE SULFATE
     Route: 065
     Dates: start: 20110801, end: 20120109
  9. LOPERAMIDE [Concomitant]
     Active Substance: LOPERAMIDE
     Route: 065
     Dates: start: 20111218, end: 20120109
  10. RAMIPRIL. [Concomitant]
     Active Substance: RAMIPRIL
     Indication: HYPERTENSION
     Route: 065
     Dates: start: 2009, end: 20120109

REACTIONS (2)
  - Dizziness [Recovered/Resolved]
  - Cardiogenic shock [Fatal]

NARRATIVE: CASE EVENT DATE: 20120105
